FAERS Safety Report 5036926-8 (Version None)
Quarter: 2006Q2

REPORT INFORMATION
  Report Type: 
  Country: None (occurrence: None)
  Receive Date: 20060622
  Receipt Date: 20060509
  Transmission Date: 20061013
  Serious: Yes (Death, Hospitalization)
  Sender: FDA-Public Use
  Company Number: 2006073765

PATIENT
  Age: 36 Year
  Sex: Female

DRUGS (6)
  1. ANSATIPINE (RIFABUTIN) [Suspect]
     Indication: DRUG USE FOR UNKNOWN INDICATION
     Dosage: 2 DF (INTERVAL: EVERY DAY), ORAL
     Route: 048
     Dates: end: 20060310
  2. KALETRA [Concomitant]
  3. ZIAGEN [Concomitant]
  4. LAMIVUDINE [Concomitant]
  5. CLARITHROMYCIN [Concomitant]
  6. MYAMBUTOL [Concomitant]

REACTIONS (2)
  - COMA HEPATIC [None]
  - TOXIC EPIDERMAL NECROLYSIS [None]
